FAERS Safety Report 21730192 (Version 2)
Quarter: 2023Q1

REPORT INFORMATION
  Report Type: Report from Study
  Country: GB (occurrence: GB)
  Receive Date: 20221214
  Receipt Date: 20230211
  Transmission Date: 20230418
  Serious: Yes (Other)
  Sender: FDA-Public Use
  Company Number: GB-CELLTRION INC.-2021GB019383

PATIENT

DRUGS (81)
  1. TRASTUZUMAB [Suspect]
     Active Substance: TRASTUZUMAB
     Indication: Breast cancer metastatic
     Dosage: 675 MG, EVERY 3 WEEKS (657 MG, TIW); PHARMACEUTICAL DOSE FORM (FREE TEXT): 231; CUMULATIVE DOSE TO F
     Route: 042
     Dates: start: 20160104, end: 20160128
  2. TRASTUZUMAB [Suspect]
     Active Substance: TRASTUZUMAB
     Indication: HER2 positive breast cancer
     Dosage: 525 MG, EVERY 3 WEEKS (525 MG, TIW); PHARMACEUTICAL DOSE FORM (FREE TEXT): 231; CUMULATIVE DOSE TO F
     Route: 042
     Dates: start: 20160128, end: 20160218
  3. TRASTUZUMAB [Suspect]
     Active Substance: TRASTUZUMAB
     Dosage: 450 MG, EVERY 3 WEEKS (450 MG, TIW); PHARMACEUTICAL DOSE FORM (FREE TEXT): 231; CUMULATIVE DOSE TO F
     Route: 042
     Dates: start: 20160310, end: 20160804
  4. TRASTUZUMAB [Suspect]
     Active Substance: TRASTUZUMAB
     Dosage: 400 MG, EVERY 3 WEEKS (400 MG, TIW); PHARMACEUTICAL DOSE FORM (FREE TEXT): 231; CUMULATIVE DOSE TO F
     Route: 042
     Dates: start: 20160825
  5. TRASTUZUMAB [Suspect]
     Active Substance: TRASTUZUMAB
     Dosage: 675 MG, EVERY 3 WEEKS; PHARMACEUTICAL DOSE FORM (FREE TEXT): 230; CUMULATIVE DOSE TO FIRST REACTION:
     Route: 042
     Dates: start: 20160104, end: 20160128
  6. TRASTUZUMAB [Suspect]
     Active Substance: TRASTUZUMAB
     Dosage: 525 MG, EVERY 3 WEEKS; PHARMACEUTICAL DOSE FORM (FREE TEXT): 230; CUMULATIVE DOSE TO FIRST REACTION:
     Route: 042
     Dates: start: 20160128, end: 20160218
  7. TRASTUZUMAB [Suspect]
     Active Substance: TRASTUZUMAB
     Dosage: 400 MG, EVERY 3 WEEKS; PHARMACEUTICAL DOSE FORM (FREE TEXT): 230; CUMULATIVE DOSE TO FIRST REACTION:
     Route: 042
     Dates: start: 20160825
  8. TRASTUZUMAB [Suspect]
     Active Substance: TRASTUZUMAB
     Dosage: 450 MG, EVERY 3 WEEKS; PHARMACEUTICAL DOSE FORM (FREE TEXT): 230; CUMULATIVE DOSE TO FIRST REACTION:
     Route: 042
     Dates: start: 20160310
  9. TRASTUZUMAB [Suspect]
     Active Substance: TRASTUZUMAB
     Dosage: 378 MG, EVERY 3 WEEKS; CUMULATIVE DOSE TO FIRST REACTION: 26712.0 MG
     Route: 042
     Dates: start: 20200124, end: 20200424
  10. TRASTUZUMAB [Suspect]
     Active Substance: TRASTUZUMAB
     Dosage: 400 MG, EVERY 3 WEEKS; CUMULATIVE DOSE TO FIRST REACTION: 4513.492 MG
     Route: 042
     Dates: start: 20160825, end: 20180705
  11. TRASTUZUMAB [Suspect]
     Active Substance: TRASTUZUMAB
     Dosage: 336 MG, EVERY 3 WEEKS; CUMULATIVE DOSE TO FIRST REACTION: 25535.334 MG
     Route: 042
     Dates: start: 20200515, end: 20200918
  12. TRASTUZUMAB [Suspect]
     Active Substance: TRASTUZUMAB
     Dosage: 441 MG, EVERY 3 WEEKS; CUMULATIVE DOSE TO FIRST REACTION:19676.125 MG
     Route: 042
     Dates: start: 20180726, end: 20200103
  13. TRASTUZUMAB [Suspect]
     Active Substance: TRASTUZUMAB
     Dosage: 378 MG, EVERY 3 WEEKS; CUMULATIVE DOSE TO FIRST REACTION: 31373.25 MG)
     Route: 042
     Dates: start: 20201009, end: 20211224
  14. TRASTUZUMAB [Suspect]
     Active Substance: TRASTUZUMAB
     Dosage: 450 MG, EVERY 3 WEEKS; CUMULATIVE DOSE TO FIRST REACTION: 46607.145 MG
     Route: 042
     Dates: start: 20160310, end: 20160804
  15. TRASTUZUMAB [Suspect]
     Active Substance: TRASTUZUMAB
     Dosage: 336 MG, EVERY 3 WEEKS; CUMULATIVE DOSE TO FIRST REACTION: 10368.667 MG
     Route: 042
     Dates: start: 20200515, end: 20200918
  16. TRASTUZUMAB [Suspect]
     Active Substance: TRASTUZUMAB
     Dosage: 378 MG, EVERY 3 WEEKS; CUMULATIVE DOSE TO FIRST REACTION: 9018.75 MG
     Route: 042
     Dates: start: 20201009, end: 20211224
  17. TRASTUZUMAB [Suspect]
     Active Substance: TRASTUZUMAB
     Dosage: 441 MG, EVERY 3 WEEKS; CUMULATIVE DOSE TO FIRST REACTION: 27447.875 MG
     Route: 042
     Dates: start: 20180726, end: 20200103
  18. TRASTUZUMAB [Suspect]
     Active Substance: TRASTUZUMAB
     Dosage: 378 MG, EVERY 3 WEEKS; CUMULATIVE DOSE TO FIRST REACTION: 13680.0 MG
     Route: 042
     Dates: start: 20200124, end: 20200424
  19. TRASTUZUMAB [Suspect]
     Active Substance: TRASTUZUMAB
     Dosage: 675 MG, EVERY 3 WEEKS; CUMULATIVE DOSE TO FIRST REACTION: 72032.14 MG
     Route: 042
     Dates: start: 20160104, end: 20160104
  20. TRASTUZUMAB [Suspect]
     Active Substance: TRASTUZUMAB
     Dosage: 400 MG, EVERY 3 WEEKS; CUMULATIVE DOSE TO FIRST REACTION: 38229.363 MG
     Route: 042
     Dates: start: 20160825, end: 20180705
  21. PERTUZUMAB [Suspect]
     Active Substance: PERTUZUMAB
     Indication: Breast cancer metastatic
     Dosage: 840 MG, EVERY 3 WEEKS (840 MG, TIW); PHARMACEUTICAL DOSE FORM (FREE TEXT): 230; CUMULATIVE DOSE TO F
     Route: 042
     Dates: start: 20160104, end: 20160128
  22. PERTUZUMAB [Suspect]
     Active Substance: PERTUZUMAB
     Indication: HER2 positive breast cancer
     Dosage: 420 MG, EVERY 3 WEEKS (420 MG, TIW); PHARMACEUTICAL DOSE FORM (FREE TEXT): 230; (CUMULATIVE DOSE TO
     Route: 042
     Dates: start: 20160218, end: 20211224
  23. PERTUZUMAB [Suspect]
     Active Substance: PERTUZUMAB
     Dosage: PHARMACEUTICAL DOSE FORM (FREE TEXT): 230; CUMULATIVE DOSE TO FIRST REACTION: 120 MG
  24. PERTUZUMAB [Suspect]
     Active Substance: PERTUZUMAB
     Dosage: PHARMACEUTICAL DOSE FORM (FREE TEXT): 230; CUMULATIVE DOSE TO FIRST REACTION: 120 MG
  25. PERTUZUMAB [Suspect]
     Active Substance: PERTUZUMAB
     Dosage: 420 MG, EVERY 3 WEEKS; CUMULATIVE DOSE TO FIRST REACTION: 1680 MG
     Route: 042
     Dates: start: 20160218
  26. PERTUZUMAB [Suspect]
     Active Substance: PERTUZUMAB
     Dosage: 840 MG, EVERY 3 WEEKS; CUMULATIVE DOSE TO FIRST REACTION: 1680 MG; CUMULATIVE DOSE TO FIRST REACTION
     Route: 042
     Dates: start: 20160104, end: 20160128
  27. PERTUZUMAB [Suspect]
     Active Substance: PERTUZUMAB
     Dosage: 420 MG, EVERY 3 WEEKS; CUMULATIVE REACTION TO FIRST REACTION: 960 MG
     Route: 042
     Dates: start: 20160218, end: 20211224
  28. DOCETAXEL [Suspect]
     Active Substance: DOCETAXEL
     Indication: Breast cancer metastatic
     Dosage: 148 MG, EVERY 3 WEEKS (148 MG, TIW); CUMULATIVE DOSE TO FIRST REACTION: 28.19 MG
     Route: 042
     Dates: start: 20160105, end: 20160218
  29. DOCETAXEL [Suspect]
     Active Substance: DOCETAXEL
     Dosage: 140 MG, EVERY 3 WEEKS (140 MG, TIW); CUMULATIVE DOSE TO FIRST REACTION: 28.19 MG
     Route: 042
     Dates: start: 20160310
  30. DOCETAXEL [Suspect]
     Active Substance: DOCETAXEL
     Dosage: 148 MG, EVERY 3 WEEKS; CUMULATIVE DOSE TO FIRST REACTION: 247 MG
     Route: 042
     Dates: start: 20160105, end: 20160218
  31. DOCETAXEL [Suspect]
     Active Substance: DOCETAXEL
     Dosage: 140 MG, EVERY 3 WEEKS; CUMULATIVE DOSE TO FIRST REACTION: 247 MG
     Route: 042
     Dates: start: 20160310
  32. DOCETAXEL [Suspect]
     Active Substance: DOCETAXEL
     Dosage: 140 MG, EVERY 3 WEEKS; CUMULATIVE DOSE TO FIRST REACTION: 460.0 MG; CUMULATIVE DOSE TO FIRST REACTIO
     Route: 042
     Dates: start: 20160310, end: 20160310
  33. DOCETAXEL [Suspect]
     Active Substance: DOCETAXEL
     Dosage: 140 MG, EVERY 3 WEEKS; CUMULATIVE DOSE TO FIRST REACTION: 14933.333 MG; CUMULATIVE DOSE TO FIRST REA
     Route: 042
     Dates: start: 20160105, end: 20160310
  34. DOCETAXEL [Suspect]
     Active Substance: DOCETAXEL
     Dosage: 148 MG, EVERY 3 WEEKS; CUMULATIVE DOSE TO FIRST REACTION: 15328.571 MG, CUMULATIVE DOSE TO FIRST REA
     Route: 042
     Dates: start: 20160310, end: 20160310
  35. DENOSUMAB [Suspect]
     Active Substance: DENOSUMAB
     Indication: Breast cancer metastatic
     Dosage: 120 MG; PHARMACEUTICAL DOSE FORM (FREE TEXT): 120
     Route: 058
     Dates: start: 20151201
  36. DENOSUMAB [Suspect]
     Active Substance: DENOSUMAB
     Indication: HER2 positive breast cancer
     Dosage: PHARMACEUTICAL DOSE FORM (FREE TEXT): 120
  37. DENOSUMAB [Suspect]
     Active Substance: DENOSUMAB
     Dosage: PHARMACEUTICAL DOSE FORM (FREE TEXT): 120
  38. DENOSUMAB [Suspect]
     Active Substance: DENOSUMAB
     Dosage: 120 MG, EVERY 3 WEEKS; CUMULATIVE DOSE TO FIRST REACTION: 13000.0 MG
     Route: 042
     Dates: start: 20151201
  39. LETROZOLE [Suspect]
     Active Substance: LETROZOLE
     Indication: Breast cancer metastatic
     Dosage: 2.5 UG, EVERY 1 DAY (2.5 UG,QD); CUMULATIVE DOSE TO FIRST REACTION: 219.89583 UG
     Route: 048
     Dates: start: 20160329
  40. LETROZOLE [Suspect]
     Active Substance: LETROZOLE
     Dosage: 2.5 UG, EVERY 1 DAY (2.5 UG, DAILY)
     Route: 048
     Dates: start: 20160329
  41. LETROZOLE [Suspect]
     Active Substance: LETROZOLE
     Dosage: 2.5 UG, EVERY 1 DAY; CUMULATIVE DOSE TO FIRST REACTION:5 390.104 UG
     Route: 048
     Dates: start: 20160329, end: 20200602
  42. ANASTROZOLE [Suspect]
     Active Substance: ANASTROZOLE
     Indication: Breast cancer metastatic
     Dosage: 1 MG, EVERY 1 DAY; CUMULATIVE DOSE TO FIRST REACTION: 2160 MG
     Route: 048
     Dates: start: 20211130
  43. TAMOXIFEN [Suspect]
     Active Substance: TAMOXIFEN
     Indication: Breast cancer metastatic
     Dosage: 20 MG, EVERY 1 DAY; CUMULATIVE DOSE TO FIRST REACTION: 12520.833 MG; CUMULATIVE DOSE TO FIRST REACTI
     Route: 048
     Dates: start: 20200606, end: 20211130
  44. ADO-TRASTUZUMAB EMTANSINE [Suspect]
     Active Substance: ADO-TRASTUZUMAB EMTANSINE
     Indication: Breast cancer metastatic
     Dosage: 200 MG, EVERY 3 WEEKS; CUMULATIVE DOSE TO FIRST REACTION: 28.571428 MG; CUMULATIVE DOSE TO FIRST REA
     Route: 042
     Dates: start: 20220225
  45. ADO-TRASTUZUMAB EMTANSINE [Suspect]
     Active Substance: ADO-TRASTUZUMAB EMTANSINE
     Dosage: 240 MG, EVERY 3 WEEKS; CUMULATIVE DOSE TO FIRST REACTION: 445.7143 MG; CUMULATIVE DOSE TO FIRST REAC
     Route: 042
     Dates: start: 20220114, end: 20220204
  46. CALCIUM\CHOLECALCIFEROL [Concomitant]
     Active Substance: CALCIUM\CHOLECALCIFEROL
     Indication: Product used for unknown indication
     Dosage: 0.5 UNK (1 TABLET ); PHARMACEUTICAL DOSE FORM (FREE TEXT): 245; EVERY 0.5 DAY
     Route: 048
     Dates: start: 20160101
  47. CALCIUM\CHOLECALCIFEROL [Concomitant]
     Active Substance: CALCIUM\CHOLECALCIFEROL
     Dosage: 1 EVERY 1 DAY (1 TABLET); PHARMACEUTICAL DOSE FORM (FREE TEXT): 245
     Route: 048
     Dates: start: 20160101
  48. CALCIUM\CHOLECALCIFEROL [Concomitant]
     Active Substance: CALCIUM\CHOLECALCIFEROL
     Dosage: 1 DF, 2X/DAY (ALSO REPORTED AS 2 DF, DAILY); CUMULATIVE DOSE TO FIRST REACTION: 2.0 {DF}
     Route: 048
     Dates: start: 20160101
  49. CALCIUM\CHOLECALCIFEROL [Concomitant]
     Active Substance: CALCIUM\CHOLECALCIFEROL
     Dosage: 1 TABLET(FREQUENCY: 0.5 DAY)
     Route: 048
     Dates: start: 20160101
  50. LANSOPRAZOLE [Concomitant]
     Active Substance: LANSOPRAZOLE
     Indication: Product used for unknown indication
     Dosage: 30 MG, QD; PHARMACEUTICAL DOSE FORM (FREE TEXT): 245; CUMULATIVE DOSE TO FIRST REACTION: 90 MG; CUMU
     Route: 048
     Dates: start: 20151229, end: 20160105
  51. DEXAMETHASONE [Concomitant]
     Active Substance: DEXAMETHASONE
     Indication: Paraesthesia
     Dosage: 16 MG, EVERY 1 DAY (TABLET UNCOATED, ORAL); CUMULATIVE DOSE TO FIRST REACTION: 32.0 MG; CUMULATIVE D
     Route: 048
     Dates: start: 20160103, end: 20160105
  52. DEXAMETHASONE [Concomitant]
     Active Substance: DEXAMETHASONE
     Indication: Anal incontinence
     Dosage: 16 MG, EVERY 1 DAY (TABLET UNCOATED, ORAL); CUMULATIVE DOSE TO FIRST REACTION: 416.0 MG; CUMULATIVE
     Route: 048
     Dates: start: 20160127, end: 20160129
  53. DEXAMETHASONE [Concomitant]
     Active Substance: DEXAMETHASONE
     Dosage: 4 MG, EVERY 1 DAY; CUMULATIVE DOSE TO FIRST REACTION: 336.0 MG
     Route: 048
     Dates: start: 20211130
  54. DEXAMETHASONE [Concomitant]
     Active Substance: DEXAMETHASONE
     Dosage: 8 MG, EVERY 1 DAY; CUMULATIVE DOSE TO FIRST REACTION: 784.0 MG
     Route: 048
     Dates: start: 20211116, end: 20211122
  55. DEXAMETHASONE [Concomitant]
     Active Substance: DEXAMETHASONE
     Dosage: 8 MG, EVERY 1 DAY; CUMULATIVE DOSE TO FIRST REACTION: 80.0 MG
     Route: 048
     Dates: start: 20220113, end: 20220225
  56. DEXAMETHASONE [Concomitant]
     Active Substance: DEXAMETHASONE
     Dosage: 8 MG, EVERY 1 DAY; CUMULATIVE DOSE TO FIRST REACTION: 728.0 MG
     Route: 048
     Dates: start: 20211123, end: 20211129
  57. DEXAMETHASONE [Concomitant]
     Active Substance: DEXAMETHASONE
     Dosage: 1 MG, EVERY 1 DAY; CUMULATIVE DOSE TO FIRST REACTION: 3.0 MG; CUMULATIVE DOSE TO FIRST REACTION: 224
     Route: 048
     Dates: start: 20220225, end: 20220225
  58. DEXAMETHASONE [Concomitant]
     Active Substance: DEXAMETHASONE
     Indication: Product used for unknown indication
     Dosage: 16 MG, QD; PHARMACEUTICAL DOSE FORM (FREE TEXT): 245; CUMULATIVE DOSE TO FIRST REACTION: 416 MG
     Route: 048
     Dates: start: 20160103
  59. DEXAMETHASONE [Concomitant]
     Active Substance: DEXAMETHASONE
     Dosage: 16 MG,QD; PHARMACEUTICAL DOSE FORM (FREE TEXT): 245; CUMULATIVE DOSE TO FIRST REACTION: 416 MG
     Route: 048
     Dates: start: 20160127
  60. DEXAMETHASONE [Concomitant]
     Active Substance: DEXAMETHASONE
     Dosage: 16 MG, EVERY 1 DAY (8 MG); PHARMACEUTICAL DOSE FORM (FREE TEXT): 245; CUMULATIVE DOSE TO FIRST REACT
     Route: 048
     Dates: start: 20160127, end: 20160129
  61. DEXAMETHASONE [Concomitant]
     Active Substance: DEXAMETHASONE
     Dosage: 16 MG, EVERY 1 DAY (8 MG, BID); PHARMACEUTICAL DOSE FORM (FREE TEXT): 245; CUMULATIVE DOSE TO FIRST
     Route: 048
     Dates: start: 20160103, end: 20160105
  62. DEXAMETHASONE [Concomitant]
     Active Substance: DEXAMETHASONE
     Dosage: 16 MG,QD; PHARMACEUTICAL DOSE FORM (FREE TEXT): 245; CUMULATIVE DOSE TO FIRST REACTION: 416 MG
     Route: 048
     Dates: start: 20160103
  63. DEXAMETHASONE [Concomitant]
     Active Substance: DEXAMETHASONE
     Dosage: 8 MG EVERY 0.5 DAY
     Route: 048
     Dates: start: 20160103, end: 20160105
  64. DEXAMETHASONE [Concomitant]
     Active Substance: DEXAMETHASONE
     Dosage: 8 MG EVERY 0.5 DAY
     Route: 048
     Dates: start: 20160127, end: 20160129
  65. DEXAMETHASONE [Concomitant]
     Active Substance: DEXAMETHASONE
     Dosage: 16 MG, DAILY (8 MG EVERY 0.5 DAY); CUMULATIVE DOSE TO FIRST REACTION: 48 MG
     Route: 048
     Dates: start: 20160127, end: 20160129
  66. DEXAMETHASONE [Concomitant]
     Active Substance: DEXAMETHASONE
     Dosage: 16 MG, DAILY (8 MG EVERY 0.5 DAY); CUMULATIVE DOSE TO FIRST REACTION: 48 MG
     Route: 048
     Dates: start: 20160103, end: 20160105
  67. DEXAMETHASONE [Concomitant]
     Active Substance: DEXAMETHASONE
     Dosage: 2 MG
     Dates: start: 20220113, end: 20220225
  68. DEXAMETHASONE [Concomitant]
     Active Substance: DEXAMETHASONE
     Dosage: 4 MG
     Dates: start: 20211130
  69. DEXAMETHASONE [Concomitant]
     Active Substance: DEXAMETHASONE
     Dosage: 8 MG
     Dates: start: 20211123, end: 20211129
  70. DEXAMETHASONE [Concomitant]
     Active Substance: DEXAMETHASONE
     Dosage: 10 MG
     Dates: start: 20211116, end: 20211122
  71. ASTRAZENECA COVID-19 VACCINE [Concomitant]
     Active Substance: AZD-1222
     Indication: COVID-19
     Dosage: UNK
  72. ASTRAZENECA COVID-19 VACCINE [Concomitant]
     Active Substance: AZD-1222
     Dosage: FIRST DOSE SECOND DOSE IN 12 WEEKS
     Route: 030
     Dates: start: 20210131, end: 20210131
  73. AMOXICILLIN\CLAVULANATE POTASSIUM [Concomitant]
     Active Substance: AMOXICILLIN\CLAVULANATE POTASSIUM
     Indication: Urinary tract infection
     Dosage: 375 MG, EVERY 1 DAY; CUMULATIVE DOSE TO FIRST REACTION: 26609.375 MG; 3 DOSES
     Route: 048
     Dates: start: 20220504, end: 20220510
  74. AMOXICILLIN\CLAVULANATE POTASSIUM [Concomitant]
     Active Substance: AMOXICILLIN\CLAVULANATE POTASSIUM
     Dosage: 3 EVERY 1 DAY, 125
     Route: 048
     Dates: start: 20220504, end: 20220510
  75. NITROFURANTOIN [Concomitant]
     Active Substance: NITROFURANTOIN
     Indication: Urinary tract infection
     Dosage: UNK
     Route: 048
     Dates: start: 20220429, end: 20220503
  76. CALCIUM [Concomitant]
     Active Substance: CALCIUM
     Indication: Hypocalcaemia
     Dosage: UNK
     Route: 048
     Dates: start: 20160321
  77. DOMPERIDONE [Concomitant]
     Active Substance: DOMPERIDONE
     Indication: Nausea
     Dosage: 30 MG, EVERY1 DAY; CUMULATIVE DOSE TO FIRST REACTION: 67380.0 MG
     Route: 048
     Dates: start: 20151230
  78. DOMPERIDONE [Concomitant]
     Active Substance: DOMPERIDONE
     Dosage: 10 MG, 1 AS NECESSARY
     Route: 048
     Dates: start: 20160129
  79. HYDROCORTISONE [Concomitant]
     Active Substance: HYDROCORTISONE
     Indication: Rash
     Dosage: 2 DOSES, EVERY 1 DAY
     Route: 061
     Dates: start: 20160301
  80. LOPERAMIDE [Concomitant]
     Active Substance: LOPERAMIDE
     Indication: Diarrhoea
     Dosage: 2 MG, 1 AS NECESSARY
     Route: 048
     Dates: start: 20160122
  81. MAGNESIUM GLYCEROPHOSPHATE [Concomitant]
     Active Substance: MAGNESIUM GLYCEROPHOSPHATE
     Indication: Hypomagnesaemia
     Dosage: 8 MMOL, 2 DOSES EVERY 1 DAY
     Route: 048
     Dates: start: 20160321

REACTIONS (11)
  - Neuropathy peripheral [Recovering/Resolving]
  - Neuropathy peripheral [Recovered/Resolved]
  - Hypomagnesaemia [Recovered/Resolved]
  - Onychalgia [Recovered/Resolved]
  - Arthralgia [Not Recovered/Not Resolved]
  - Diarrhoea [Not Recovered/Not Resolved]
  - Ejection fraction decreased [Recovered/Resolved]
  - Fatigue [Recovered/Resolved]
  - Nausea [Recovered/Resolved]
  - Rash [Recovered/Resolved]
  - Urinary tract infection [Recovered/Resolved]

NARRATIVE: CASE EVENT DATE: 20160101
